FAERS Safety Report 4474334-9 (Version None)
Quarter: 2004Q4

REPORT INFORMATION
  Report Type: 
  Country: None (occurrence: None)
  Receive Date: 20041014
  Receipt Date: 20041007
  Transmission Date: 20050328
  Serious: Yes (Hospitalization)
  Sender: FDA-Public Use
  Company Number: AU-MERCK-0410AUS00113

PATIENT
  Sex: Female

DRUGS (5)
  1. VIOXX [Suspect]
     Indication: SPONDYLITIS
     Route: 048
     Dates: start: 20020101, end: 20041004
  2. CLONIDINE HYDROCHLORIDE [Concomitant]
     Route: 065
  3. INDAPAMIDE AND PERINDOPRIL ERBUMINE [Concomitant]
     Route: 065
  4. OXYCODONE HYDROCHLORIDE [Concomitant]
     Route: 065
  5. QUININE [Concomitant]
     Route: 065

REACTIONS (1)
  - CEREBROVASCULAR ACCIDENT [None]
